FAERS Safety Report 8314059-2 (Version None)
Quarter: 2012Q2

REPORT INFORMATION
  Report Type: 
  Country: None (occurrence: None)
  Receive Date: 20120426
  Receipt Date: 20120418
  Transmission Date: 20120825
  Serious: Yes (Other)
  Sender: FDA-Public Use
  Company Number: US-BAYER-2012-037766

PATIENT
  Age: 28 Year
  Sex: Female

DRUGS (1)
  1. MIRENA [Suspect]
     Indication: CONTRACEPTION
     Dosage: 20 MCG/24HR, CONT
     Route: 015
     Dates: start: 20110503

REACTIONS (8)
  - HEADACHE [None]
  - POST PROCEDURAL HAEMORRHAGE [None]
  - PALPITATIONS [None]
  - ACNE [None]
  - VISION BLURRED [None]
  - HEART RATE DECREASED [None]
  - DIZZINESS [None]
  - MENSTRUATION IRREGULAR [None]
